FAERS Safety Report 13641247 (Version 1)
Quarter: 2017Q2

REPORT INFORMATION
  Report Type: Spontaneous
  Country: US (occurrence: US)
  Receive Date: 20170609
  Receipt Date: 20170609
  Transmission Date: 20170830
  Serious: Yes (Life-Threatening, Hospitalization)
  Sender: FDA-Public Use
  Company Number: None

PATIENT
  Age: 35 Year
  Sex: Female
  Weight: 85.5 kg

DRUGS (1)
  1. MISOPROSTOL. [Suspect]
     Active Substance: MISOPROSTOL
     Indication: LABOUR INDUCTION
     Dates: start: 20170222, end: 20170222

REACTIONS (5)
  - Haematoma [None]
  - Uterine haemorrhage [None]
  - Internal haemorrhage [None]
  - Uterine rupture [None]
  - Hysterectomy [None]

NARRATIVE: CASE EVENT DATE: 20170222
